FAERS Safety Report 24782122 (Version 1)
Quarter: 2024Q4

REPORT INFORMATION
  Report Type: Spontaneous
  Country: DE (occurrence: DE)
  Receive Date: 20241227
  Receipt Date: 20241227
  Transmission Date: 20250115
  Serious: Yes (Hospitalization)
  Sender: MERCK
  Company Number: None

PATIENT
  Age: 68 Year
  Sex: Male
  Weight: 100 kg

DRUGS (1)
  1. KEYTRUDA [Suspect]
     Active Substance: PEMBROLIZUMAB
     Indication: Neoplasm malignant
     Dosage: 400ML INSTEAD OF 200ML
     Route: 042
     Dates: start: 20241107

REACTIONS (5)
  - Productive cough [Not Recovered/Not Resolved]
  - Eye pain [Not Recovered/Not Resolved]
  - Musculoskeletal chest pain [Not Recovered/Not Resolved]
  - Sinusitis [Not Recovered/Not Resolved]
  - Eyelid oedema [Not Recovered/Not Resolved]

NARRATIVE: CASE EVENT DATE: 20241108
